FAERS Safety Report 6933496-1 (Version None)
Quarter: 2010Q3

REPORT INFORMATION
  Report Type: 
  Country: None (occurrence: None)
  Receive Date: 20100820
  Receipt Date: 20100818
  Transmission Date: 20110219
  Serious: Yes (Hospitalization)
  Sender: FDA-Public Use
  Company Number: PL-BRISTOL-MYERS SQUIBB COMPANY-15163892

PATIENT
  Age: 60 Year
  Sex: Male
  Weight: 50 kg

DRUGS (8)
  1. CISPLATIN [Suspect]
     Indication: NON-SMALL CELL LUNG CANCER
     Dosage: INTERRUPTED ON 07-JUN-2010;RESUMED ON 21JUN2010
     Route: 042
     Dates: start: 20100531
  2. GEMCITABINE [Suspect]
     Indication: NON-SMALL CELL LUNG CANCER
     Dosage: LAST DOSE RECEIVED:31-MAY-2010.(INTERRUPTED ON 07-JUN-2010);RESUMED ON 21JUN2010
     Route: 042
     Dates: start: 20100531
  3. ELECTROLYTE SOLUTION [Concomitant]
     Indication: PROPHYLAXIS AGAINST DEHYDRATION
     Dosage: COMPOUND
     Route: 042
  4. KETONAL [Concomitant]
     Indication: CANCER PAIN
     Route: 048
  5. TRAMAL [Concomitant]
     Indication: CANCER PAIN
     Route: 048
  6. HELICID [Concomitant]
     Indication: PROPHYLAXIS
     Route: 048
  7. THEOSPIREX [Concomitant]
     Indication: CHRONIC OBSTRUCTIVE PULMONARY DISEASE
     Route: 048
  8. ATROVENT [Concomitant]
     Indication: CHRONIC OBSTRUCTIVE PULMONARY DISEASE

REACTIONS (2)
  - HAEMOPTYSIS [None]
  - PYREXIA [None]
